FAERS Safety Report 9515531 (Version 2)
Quarter: 2013Q3

REPORT INFORMATION
  Report Type: Report from Study
  Country: US (occurrence: US)
  Receive Date: 20130911
  Receipt Date: 20130920
  Transmission Date: 20140515
  Serious: Yes (Death)
  Sender: FDA-Public Use
  Company Number: PHEH2013US019006

PATIENT
  Sex: Male

DRUGS (3)
  1. ZOMETA [Suspect]
     Indication: METASTASES TO BONE
     Dosage: 4 MG
     Route: 042
  2. CISPLATIN [Suspect]
     Dosage: UNK UKN, UNK
  3. ALIMTA [Suspect]
     Dosage: UNK UKN, UNK

REACTIONS (6)
  - Malignant neoplasm progression [Fatal]
  - Non-small cell lung cancer stage IV [Fatal]
  - Tachycardia [Unknown]
  - Constipation [Unknown]
  - Back pain [Unknown]
  - Abdominal pain [Unknown]
